FAERS Safety Report 8255593-3 (Version None)
Quarter: 2012Q2

REPORT INFORMATION
  Report Type: 
  Country: None (occurrence: None)
  Receive Date: 20120403
  Receipt Date: 20120330
  Transmission Date: 20120825
  Serious: Yes (Life-Threatening, Hospitalization)
  Sender: FDA-Public Use
  Company Number: IT-ASTRAZENECA-2012SE14533

PATIENT
  Age: 21931 Day
  Sex: Male

DRUGS (11)
  1. BRILIQUE [Suspect]
     Indication: MYOCARDIAL INFARCTION
     Route: 048
     Dates: start: 20120219, end: 20120219
  2. BRILIQUE [Suspect]
     Route: 048
     Dates: start: 20120220, end: 20120221
  3. HEPARIN [Concomitant]
  4. FUROSEMIDE [Concomitant]
  5. POTASSIUM CHLORIDE [Concomitant]
  6. AMIODARONE HCL [Concomitant]
  7. PANTOPRAZOLE [Concomitant]
  8. CAPTOPRIL [Concomitant]
  9. CANRENONE [Concomitant]
  10. ASPIRIN [Concomitant]
  11. ATORVASTATIN [Concomitant]

REACTIONS (3)
  - AGITATION [None]
  - DYSPNOEA [None]
  - FEELING JITTERY [None]
